FAERS Safety Report 8543838-1 (Version None)
Quarter: 2012Q3

REPORT INFORMATION
  Report Type: 
  Country: None (occurrence: None)
  Receive Date: 20120727
  Receipt Date: 20120723
  Transmission Date: 20120928
  Serious: Yes (Hospitalization)
  Sender: FDA-Public Use
  Company Number: FR-PFIZER INC-2012176944

PATIENT
  Age: 59 Year
  Sex: Female

DRUGS (2)
  1. CYCLOPHOSPHAMIDE [Suspect]
     Dosage: UNK
     Route: 042
     Dates: start: 20120319, end: 20120502
  2. EPIRUBICIN HYDROCHLORIDE [Suspect]
     Dosage: 180 MG, 1X/DAY, CYCLIC
     Route: 048
     Dates: start: 20120319, end: 20120502

REACTIONS (1)
  - DYSPNOEA EXERTIONAL [None]
